FAERS Safety Report 5521551-2 (Version None)
Quarter: 2007Q4

REPORT INFORMATION
  Report Type: 
  Country: None (occurrence: None)
  Receive Date: 20071115
  Receipt Date: 20071030
  Transmission Date: 20080405
  Serious: Yes (Death)
  Sender: FDA-Public Use
  Company Number: A-CH2007-18335

PATIENT
  Age: 42 Year
  Sex: Female

DRUGS (8)
  1. TRACLEER [Suspect]
     Indication: PULMONARY HYPERTENSION
     Dosage: 62.5 MG, BID, ORAL
     Route: 048
     Dates: start: 20070904
  2. ALLOPURINOL [Concomitant]
  3. ASCAL (CARBASALATE CALCIUM) [Concomitant]
  4. DEPAKENE [Concomitant]
  5. FUROSEMIDE [Concomitant]
  6. LANOXIN [Concomitant]
  7. SPIRONOLACTONE [Concomitant]
  8. THYRAX (LEVOTHYROXINE) [Concomitant]

REACTIONS (3)
  - CEREBROVASCULAR ACCIDENT [None]
  - EPILEPSY [None]
  - LOSS OF CONSCIOUSNESS [None]
